FAERS Safety Report 7013642-4 (Version None)
Quarter: 2010Q3

REPORT INFORMATION
  Report Type: 
  Country: None (occurrence: None)
  Receive Date: 20100924
  Receipt Date: 20100914
  Transmission Date: 20110219
  Serious: Yes (Hospitalization, Other)
  Sender: FDA-Public Use
  Company Number: JP-PFIZER INC-2010111922

PATIENT
  Age: 87 Year
  Sex: Male
  Weight: 71 kg

DRUGS (7)
  1. LYRICA [Suspect]
     Indication: POST HERPETIC NEURALGIA
     Dosage: 75 MG, 1X/DAY
     Route: 048
     Dates: start: 20100817, end: 20100825
  2. LYRICA [Suspect]
     Dosage: 75 MG, 2X/DAY
     Route: 048
     Dates: start: 20100826, end: 20100902
  3. METHYCOBAL [Concomitant]
     Indication: POST HERPETIC NEURALGIA
     Dosage: 500 MG, 3X/DAY
     Route: 048
     Dates: start: 20100803
  4. LOXOPROFEN SODIUM [Concomitant]
     Indication: POST HERPETIC NEURALGIA
     Dosage: 60 MG, 3X/DAY
     Route: 048
     Dates: start: 20100803
  5. MUCOSTA [Concomitant]
     Indication: ABDOMINAL PAIN UPPER
     Dosage: 100 MG, 3X/DAY
     Route: 048
     Dates: start: 20100803
  6. FAMOTIDINE [Concomitant]
     Indication: ABDOMINAL PAIN UPPER
     Dosage: 10 MG, 2X/DAY
     Route: 048
     Dates: start: 20100817
  7. ACIROVEC [Concomitant]
     Indication: HERPES ZOSTER
     Dosage: 250 MG, 2X/DAY
     Route: 041
     Dates: start: 20100804, end: 20100811

REACTIONS (8)
  - ALANINE AMINOTRANSFERASE INCREASED [None]
  - ASPARTATE AMINOTRANSFERASE INCREASED [None]
  - BLOOD AMYLASE INCREASED [None]
  - BLOOD CREATINE PHOSPHOKINASE INCREASED [None]
  - DEHYDRATION [None]
  - FALL [None]
  - NASOPHARYNGITIS [None]
  - POST HERPETIC NEURALGIA [None]
